FAERS Safety Report 11510063 (Version 1)
Quarter: 2015Q3

REPORT INFORMATION
  Report Type: Spontaneous
  Country: US (occurrence: US)
  Receive Date: 20150915
  Receipt Date: 20150915
  Transmission Date: 20151125
  Serious: No
  Sender: FDA-Public Use
  Company Number: US-JNJFOC-20150808984

PATIENT
  Sex: Male

DRUGS (3)
  1. CHILDRENS BENADRYL ALLERGY CHERRY FLAVORED [Suspect]
     Active Substance: DIPHENHYDRAMINE HYDROCHLORIDE
     Indication: ARTHROPOD STING
     Route: 048
     Dates: start: 20150808
  2. MOTRIN [Suspect]
     Active Substance: IBUPROFEN
     Route: 065
  3. MOTRIN [Suspect]
     Active Substance: IBUPROFEN
     Indication: ARTHROPOD STING
     Route: 065

REACTIONS (1)
  - Product use issue [Unknown]
